FAERS Safety Report 25651153 (Version 5)
Quarter: 2025Q4

REPORT INFORMATION
  Report Type: Spontaneous
  Country: EU (occurrence: EU)
  Receive Date: 20250806
  Receipt Date: 20251106
  Transmission Date: 20260117
  Serious: Yes (Hospitalization, Other)
  Sender: PFIZER
  Company Number: EU-ROCHE-10000341256

PATIENT
  Age: 53 Year
  Sex: Female
  Weight: 61 kg

DRUGS (16)
  1. DOXORUBICIN HYDROCHLORIDE [Suspect]
     Active Substance: DOXORUBICIN HYDROCHLORIDE
     Indication: Triple negative breast cancer
     Dosage: 345 MG (LAST DOSE ADMINISTERED BEFORE SAE, 03-JUL-2025 C5D1)
     Route: 042
     Dates: start: 20250703
  2. DOXORUBICIN HYDROCHLORIDE [Suspect]
     Active Substance: DOXORUBICIN HYDROCHLORIDE
     Dosage: 75 MG (LAST DOSE ADMINISTERED BEFORE SAE 04-SEP-2025, 75 MG, C1D1)
     Dates: start: 20250904
  3. CARBOPLATIN [Suspect]
     Active Substance: CARBOPLATIN
     Indication: Triple negative breast cancer
     Dosage: 1925 MG
     Route: 042
     Dates: start: 20250327
  4. CARBOPLATIN [Suspect]
     Active Substance: CARBOPLATIN
     Dosage: 336 MG (LAST DOSE ADMINISTERED BEFORE SAE 13-JUN-2025, 366 MG, C1D1)
     Route: 042
     Dates: start: 20250613
  5. TIRAGOLUMAB [Suspect]
     Active Substance: TIRAGOLUMAB
     Indication: Triple negative breast cancer
     Dosage: 4800 MG
     Route: 042
     Dates: start: 20250327
  6. TIRAGOLUMAB [Suspect]
     Active Substance: TIRAGOLUMAB
     Dosage: 1200 MG (LAST DOSE ADMINISTERED BEFORE SAE 03-JUL-2025, 1200 MG C1D1)
     Route: 042
     Dates: start: 20250703
  7. TIRAGOLUMAB [Suspect]
     Active Substance: TIRAGOLUMAB
     Dosage: 600 MG (LAST DOSE ADMINISTERED BEFORE SAE 04-SEP-2025, 600 MG, C1D1)
     Route: 042
     Dates: start: 20250904
  8. ATEZOLIZUMAB [Suspect]
     Active Substance: ATEZOLIZUMAB
     Indication: Triple negative breast cancer
     Dosage: 9600 MG
     Route: 042
     Dates: start: 20250327
  9. ATEZOLIZUMAB [Suspect]
     Active Substance: ATEZOLIZUMAB
     Dosage: 600 MG (LAST DOSE ADMINISTERED BEFORE SAE 03-JUL-2025, 600 MG, C1D1)
     Route: 042
     Dates: start: 20250703
  10. ATEZOLIZUMAB [Suspect]
     Active Substance: ATEZOLIZUMAB
     Dosage: 1200 MG (LAST DOSE ADMINISTERED BEFORE SAE 04-SEP-2025, 1200 MG, C1D1)
     Dates: start: 20250904
  11. PACLITAXEL [Suspect]
     Active Substance: PACLITAXEL
     Indication: Triple negative breast cancer
     Dosage: 720 MG
     Route: 042
     Dates: start: 20250327
  12. PACLITAXEL [Suspect]
     Active Substance: PACLITAXEL
     Dosage: 180 MG (LAST DOSE ADMINISTERED BEFORE SAE 26-JUN-2025, 180 MG, C1D1)
     Route: 042
     Dates: start: 20250626
  13. CYCLOPHOSPHAMIDE [Suspect]
     Active Substance: CYCLOPHOSPHAMIDE
     Indication: Triple negative breast cancer
     Dosage: 3466 MG (LAST DOSE ADMINISTERED BEFORE SAE, 03-JUL-2025 C5D1L)
     Route: 042
     Dates: start: 20250703
  14. CYCLOPHOSPHAMIDE [Suspect]
     Active Substance: CYCLOPHOSPHAMIDE
     Dosage: 750 MG (LAST DOSE ADMINISTERED BEFORE SAE 04-SEP-2025, 75 0 MG, C1D1)
     Route: 042
     Dates: start: 20250904
  15. PEGFILGRASTIM [Concomitant]
     Active Substance: PEGFILGRASTIM
     Dosage: 6 MG
     Route: 058
     Dates: start: 20250704, end: 20250704
  16. AMPICILLIN TRIHYDRATE\CLAVULANATE POTASSIUM [Concomitant]
     Active Substance: AMPICILLIN TRIHYDRATE\CLAVULANATE POTASSIUM
     Indication: Sialoadenitis
     Dosage: 500 MG
     Route: 030
     Dates: start: 20250713

REACTIONS (4)
  - Febrile neutropenia [Recovered/Resolved]
  - Immune-mediated myocarditis [Not Recovered/Not Resolved]
  - Blood pressure diastolic decreased [Unknown]
  - Off label use [Unknown]

NARRATIVE: CASE EVENT DATE: 20250327
